FAERS Safety Report 4493412-1 (Version None)
Quarter: 2004Q4

REPORT INFORMATION
  Report Type: 
  Country: None (occurrence: None)
  Receive Date: 20041102
  Receipt Date: 20041028
  Transmission Date: 20050328
  Serious: Yes (Other)
  Sender: FDA-Public Use
  Company Number: A0531414A

PATIENT
  Sex: Male

DRUGS (2)
  1. IMITREX [Suspect]
     Dosage: ORAL
     Route: 048
  2. ANTIDEPRESSANT (ANTIDEPRESSANT) [Suspect]

REACTIONS (1)
  - COMA [None]
